FAERS Safety Report 5495958-6 (Version None)
Quarter: 2007Q4

REPORT INFORMATION
  Report Type: 
  Country: None (occurrence: None)
  Receive Date: 20071025
  Receipt Date: 20070103
  Transmission Date: 20080405
  Serious: No
  Sender: FDA-Public Use
  Company Number: A0633749A

PATIENT
  Age: 71 Year
  Sex: Female

DRUGS (6)
  1. ADVAIR DISKUS 100/50 [Suspect]
     Indication: CHRONIC OBSTRUCTIVE PULMONARY DISEASE
     Dosage: 250MCG TWICE PER DAY
     Route: 055
     Dates: start: 20040101
  2. DIOVAN [Concomitant]
  3. PAXIL [Concomitant]
  4. CLONAZEPAM [Concomitant]
  5. WELLBUTRIN XL [Concomitant]
  6. DRY EYE THERAPY [Concomitant]

REACTIONS (2)
  - EYE PAIN [None]
  - HEADACHE [None]
